FAERS Safety Report 8862936 (Version 3)
Quarter: 2012Q4

REPORT INFORMATION
  Report Type: 
  Country: US (occurrence: US)
  Receive Date: 20121026
  Receipt Date: 20121030
  Transmission Date: 20130627
  Serious: Yes (Hospitalization, Other)
  Sender: FDA-Public Use
  Company Number: PHEH2012US013513

PATIENT
  Age: 65 Year
  Sex: Female

DRUGS (2)
  1. GILENYA [Suspect]
     Indication: MULTIPLE SCLEROSIS
     Dosage: 1 DF, QD
     Route: 048
     Dates: start: 20120619, end: 20120619
  2. NORVASC [Concomitant]
     Dosage: 5 mg, UNK

REACTIONS (4)
  - Atrioventricular block second degree [Recovering/Resolving]
  - Heart rate decreased [Recovering/Resolving]
  - Sinus tachycardia [Unknown]
  - Electrocardiogram QT prolonged [Unknown]
